FAERS Safety Report 7400195-1 (Version None)
Quarter: 2011Q2

REPORT INFORMATION
  Report Type: 
  Country: None (occurrence: None)
  Receive Date: 20110407
  Receipt Date: 20110325
  Transmission Date: 20111010
  Serious: Yes (Hospitalization)
  Sender: FDA-Public Use
  Company Number: US-CELGENEUS-163-21880-11033148

PATIENT
  Sex: Male

DRUGS (3)
  1. VALACICLOVIR [Concomitant]
     Route: 065
  2. METFORMIN [Concomitant]
     Route: 065
  3. REVLIMID [Suspect]
     Dosage: 10 MILLIGRAM
     Route: 048
     Dates: start: 20090616

REACTIONS (1)
  - RENAL NEOPLASM [None]
